FAERS Safety Report 4373103-8 (Version None)
Quarter: 2004Q2

REPORT INFORMATION
  Report Type: 
  Country: None (occurrence: None)
  Receive Date: 20040603
  Receipt Date: 20040513
  Transmission Date: 20050107
  Serious: Yes (Other)
  Sender: FDA-Public Use
  Company Number: USA021225128

PATIENT
  Age: 75 Year
  Sex: Male

DRUGS (2)
  1. HUMALOG [Suspect]
     Indication: DIABETES MELLITUS
     Dates: start: 20020101
  2. HUMULIN N [Suspect]
     Indication: DIABETES MELLITUS
     Dosage: 5 U/1 AT BEDTIME

REACTIONS (6)
  - APHAGIA [None]
  - BLOOD GLUCOSE FLUCTUATION [None]
  - EMOTIONAL DISTRESS [None]
  - MEDICAL DEVICE COMPLICATION [None]
  - ROAD TRAFFIC ACCIDENT [None]
  - STRESS SYMPTOMS [None]
